FAERS Safety Report 22097530 (Version 1)
Quarter: 2023Q1

REPORT INFORMATION
  Report Type: Spontaneous
  Country: CA (occurrence: CA)
  Receive Date: 20230315
  Receipt Date: 20230315
  Transmission Date: 20230417
  Serious: Yes (Other)
  Sender: FDA-Public Use
  Company Number: CA-CELLTRION INC.-2022CA021443

PATIENT

DRUGS (13)
  1. INFLECTRA [Suspect]
     Active Substance: INFLIXIMAB-DYYB
     Indication: Crohn^s disease
     Dosage: 300 MG, Q 0 WEEK DOSE
     Route: 042
     Dates: start: 20200805, end: 20200805
  2. INFLECTRA [Suspect]
     Active Substance: INFLIXIMAB-DYYB
     Dosage: 300 MG, Q 2 WEEK DOSE
     Route: 042
     Dates: start: 20200819, end: 20200819
  3. INFLECTRA [Suspect]
     Active Substance: INFLIXIMAB-DYYB
     Dosage: 300 MG, Q 6 WEEK DOSE
     Route: 042
     Dates: start: 20200916, end: 20200916
  4. INFLECTRA [Suspect]
     Active Substance: INFLIXIMAB-DYYB
     Dosage: 300 MG, EVERY 8 WEEK
     Route: 042
     Dates: start: 20201127, end: 20201127
  5. INFLECTRA [Suspect]
     Active Substance: INFLIXIMAB-DYYB
     Dosage: 300 MG, EVERY 4 WEEK
     Route: 042
     Dates: start: 20201221, end: 20210420
  6. INFLECTRA [Suspect]
     Active Substance: INFLIXIMAB-DYYB
     Dosage: 400 MG, EVERY 6 WEEK
     Route: 042
     Dates: start: 20210601
  7. INFLECTRA [Suspect]
     Active Substance: INFLIXIMAB-DYYB
     Dosage: 400 MG, EVERY 6 WEEK
     Route: 042
     Dates: start: 20221028
  8. INFLECTRA [Suspect]
     Active Substance: INFLIXIMAB-DYYB
     Dosage: 400 MG, EVERY 6 WEEK
     Route: 042
     Dates: start: 20221209
  9. INFLECTRA [Suspect]
     Active Substance: INFLIXIMAB-DYYB
     Dosage: 500 MG, EVERY 6 WEEK, NOT YET STARTED
     Route: 042
     Dates: start: 20230123
  10. INFLECTRA [Suspect]
     Active Substance: INFLIXIMAB-DYYB
     Dosage: 500 MG, EVERY 6 WEEK
     Route: 042
     Dates: start: 20230306
  11. VITAMIN B12 [Concomitant]
     Active Substance: CYANOCOBALAMIN
     Dosage: 1 DF, UNKNOWN DOSAGE AND FREQUENCY
     Route: 065
  12. ERGOCALCIFEROL [Concomitant]
     Active Substance: ERGOCALCIFEROL
     Dosage: 1 DF, UNKNOWN DOSAGE AND FREQUENCY
     Route: 065
  13. ZOMIG [Concomitant]
     Active Substance: ZOLMITRIPTAN
     Dosage: 1 DF, UNKNOWN DOSAGE AND FREQUENCY
     Route: 065

REACTIONS (4)
  - Gestational diabetes [Not Recovered/Not Resolved]
  - Off label use [Unknown]
  - Maternal exposure during pregnancy [Unknown]
  - Heart rate increased [Unknown]

NARRATIVE: CASE EVENT DATE: 20201221
